FAERS Safety Report 4541859-7 (Version None)
Quarter: 2004Q4

REPORT INFORMATION
  Report Type: 
  Country: None (occurrence: None)
  Receive Date: 20041227
  Receipt Date: 20041213
  Transmission Date: 20050328
  Serious: Yes (Life-Threatening)
  Sender: FDA-Public Use
  Company Number: 2004109160

PATIENT
  Age: 51 Year
  Sex: Male

DRUGS (4)
  1. CARDENALIN (DOXAZOSIN) [Suspect]
     Indication: ILL-DEFINED DISORDER
     Dosage: 52 MG , ORAL
     Route: 048
     Dates: start: 20041204
  2. NIFEDIPINE (NIFEDIPINE) [Suspect]
     Indication: ILL-DEFINED DISORDER
     Dosage: 520 MG, ORAL
     Route: 048
     Dates: start: 20041204
  3. IMIDAPRIL HYDROCHLORIDE (IMIDAPRIL HYDROCHLORIDE) [Suspect]
     Indication: ILL-DEFINED DISORDER
     Dosage: 170 MG (UNKNOWN), ORAL
     Route: 048
     Dates: start: 20041204
  4. METHYLDOPA [Suspect]
     Indication: ILL-DEFINED DISORDER
     Dosage: 13.5 GRAM (UNKNOWN), ORAL
     Route: 048
     Dates: start: 20041204

REACTIONS (2)
  - INTENTIONAL OVERDOSE [None]
  - SUICIDE ATTEMPT [None]
